FAERS Safety Report 9566040 (Version 2)
Quarter: 2013Q4

REPORT INFORMATION
  Report Type: Spontaneous
  Country: US (occurrence: US)
  Receive Date: 20130930
  Receipt Date: 20131031
  Transmission Date: 20140711
  Serious: Yes (Other)
  Sender: FDA-Public Use
  Company Number: US-BIOMARINAP-US-2013-101583

PATIENT
  Sex: Male
  Weight: 55 kg

DRUGS (1)
  1. ALDURAZYME [Suspect]
     Indication: MUCOPOLYSACCHARIDOSIS I
     Dosage: 31.9 MG, QW
     Route: 042
     Dates: start: 20041117

REACTIONS (4)
  - Spinal cord compression [Recovered/Resolved]
  - Procedural complication [Unknown]
  - Arthropathy [Unknown]
  - Musculoskeletal stiffness [Unknown]
